FAERS Safety Report 24180542 (Version 1)
Quarter: 2024Q3

REPORT INFORMATION
  Report Type: Spontaneous
  Country: US (occurrence: None)
  Receive Date: 20240805
  Receipt Date: 20240805
  Transmission Date: 20241017
  Serious: Yes (Other)
  Sender: Public
  Company Number: None

PATIENT
  Age: 68 Year
  Sex: Female
  Weight: 92.25 kg

DRUGS (32)
  1. TYRVAYA [Suspect]
     Active Substance: VARENICLINE TARTRATE
     Indication: Sjogren^s syndrome
     Dosage: OTHER QUANTITY : 2 SPRAY(S)?FREQUENCY : TWICE A DAY?OTHER ROUTE : NASAL SPRAY?
     Route: 050
     Dates: start: 20240528, end: 20240701
  2. Hydroxcycloroquinne [Concomitant]
  3. SERTRALINE [Concomitant]
     Active Substance: SERTRALINE HYDROCHLORIDE
  4. RESTASIS [Concomitant]
     Active Substance: CYCLOSPORINE
  5. ASPIRIN [Concomitant]
     Active Substance: ASPIRIN
  6. mebivolol [Concomitant]
  7. potassium chlordie [Concomitant]
  8. SYNTHROID [Concomitant]
     Active Substance: LEVOTHYROXINE SODIUM
  9. LORAZEPAM [Concomitant]
     Active Substance: LORAZEPAM
  10. LIOTHYRONINE [Concomitant]
     Active Substance: LIOTHYRONINE
  11. hormones compounded pill and cream [Concomitant]
  12. estradial creme [Concomitant]
  13. ACETAMINOPHEN\HYDROCODONE BITARTRATE [Concomitant]
     Active Substance: ACETAMINOPHEN\HYDROCODONE BITARTRATE
  14. AZELASTINE [Concomitant]
     Active Substance: AZELASTINE\AZELASTINE HYDROCHLORIDE
  15. Culturelle probioticvs [Concomitant]
  16. women D-Mannose/cranberry pill [Concomitant]
  17. VITAMIN D3 [Concomitant]
     Active Substance: CHOLECALCIFEROL
  18. VITAMIN A [Concomitant]
     Active Substance: VITAMIN A
  19. JWH-018 [Concomitant]
     Active Substance: JWH-018
  20. magnesiou oxide and malanese [Concomitant]
  21. MAGNESIUM L-THREONATE [Concomitant]
  22. calcium complex [Concomitant]
  23. BIO E [Concomitant]
  24. FLAXSEED [Concomitant]
     Active Substance: FLAX SEED
  25. VITAMIN B COMPLEX [Concomitant]
     Active Substance: CYANOCOBALAMIN\DEXPANTHENOL\NIACINAMIDE\PYRIDOXINE HYDROCHLORIDE\RIBOFLAVIN 5^-PHOSPHATE SODIUM\THIA
  26. vitacm C with bioflavonoids [Concomitant]
  27. zinco [Concomitant]
  28. CLARITIN [Concomitant]
     Active Substance: LORATADINE
  29. Aller Max [Concomitant]
  30. ECHINACEA [Concomitant]
     Active Substance: ECHINACEA, UNSPECIFIED
  31. ear oil [Concomitant]
  32. dry mouth spray and tooth paste and mouth wash [Concomitant]

REACTIONS (2)
  - Sinusitis [None]
  - Cough [None]

NARRATIVE: CASE EVENT DATE: 20240702
